FAERS Safety Report 8346197-2 (Version None)
Quarter: 2012Q2

REPORT INFORMATION
  Report Type: 
  Country: None (occurrence: None)
  Receive Date: 20120509
  Receipt Date: 20120426
  Transmission Date: 20120825
  Serious: Yes (Death, Other)
  Sender: FDA-Public Use
  Company Number: US-MYLANLABS-2008AL011195

PATIENT
  Age: 69 Year
  Sex: Male

DRUGS (29)
  1. FUROSEMIDE [Concomitant]
  2. FORADIL [Concomitant]
  3. CARVEDILOL [Concomitant]
  4. ASTELIN [Concomitant]
  5. COMBIVENT [Concomitant]
  6. ADVAIR DISKUS 100/50 [Concomitant]
  7. DIGOXIN [Suspect]
     Route: 048
     Dates: start: 20040420, end: 20080506
  8. BENAZEPRIL HYDROCHLORIDE [Concomitant]
  9. COREG [Concomitant]
  10. APAP TAB [Concomitant]
  11. PAROXETINE [Concomitant]
  12. PRAVACHOL [Concomitant]
  13. HYDROCODONE BITARTRATE [Concomitant]
  14. BIAXIN [Concomitant]
  15. TRAZODONE HCL [Concomitant]
  16. AVELOX [Concomitant]
  17. PAXIL [Concomitant]
  18. LOTENSIN [Concomitant]
  19. PLAVIX [Concomitant]
  20. VIGAMOX [Concomitant]
  21. THEOPHYLLINE [Concomitant]
  22. CEPHALEXIN [Concomitant]
  23. ZYRTEC [Concomitant]
  24. LEVAQUIN [Concomitant]
  25. PRAVASTATIN [Concomitant]
  26. ALBUTEROL [Concomitant]
  27. TEMAZEPAM [Concomitant]
  28. NYSTATIN [Concomitant]
  29. ASPIRIN [Concomitant]

REACTIONS (28)
  - LOSS OF EMPLOYMENT [None]
  - DEPRESSION [None]
  - SOMNOLENCE [None]
  - PAIN [None]
  - CHRONIC OBSTRUCTIVE PULMONARY DISEASE [None]
  - CORONARY ARTERY DISEASE [None]
  - OEDEMA PERIPHERAL [None]
  - ECHOCARDIOGRAM ABNORMAL [None]
  - PERIPHERAL VASCULAR DISORDER [None]
  - RENAL FAILURE [None]
  - CARDIOMYOPATHY [None]
  - INSOMNIA [None]
  - FATIGUE [None]
  - DYSPNOEA [None]
  - CHEST PAIN [None]
  - HYPERTENSION [None]
  - HYPERLIPIDAEMIA [None]
  - BREATH SOUNDS ABNORMAL [None]
  - ECONOMIC PROBLEM [None]
  - SOCIAL AVOIDANT BEHAVIOUR [None]
  - DEATH [None]
  - CARDIAC MURMUR [None]
  - INJURY [None]
  - COUGH [None]
  - MITRAL VALVE INCOMPETENCE [None]
  - ILL-DEFINED DISORDER [None]
  - EJECTION FRACTION DECREASED [None]
  - WEIGHT DECREASED [None]
